FAERS Safety Report 4320689-5 (Version None)
Quarter: 2004Q1

REPORT INFORMATION
  Report Type: 
  Country: None (occurrence: None)
  Receive Date: 20040318
  Receipt Date: 20031117
  Transmission Date: 20041129
  Serious: Yes (Life-Threatening)
  Sender: FDA-Public Use
  Company Number: F04200300194

PATIENT
  Age: 83 Year
  Sex: Female

DRUGS (9)
  1. ARIXTRA [Suspect]
     Indication: THROMBOSIS PROPHYLAXIS
     Dosage: 2.5 MG OD SUBCUTANEOUS
     Route: 058
     Dates: start: 20030710, end: 20030718
  2. VIOXX [Concomitant]
  3. TOREM 10 (TORASEMIDE) [Concomitant]
  4. EUTHYROX 75 (LEVOTHYROXINE SODIUM) [Concomitant]
  5. COVERSUM 2 (PERINDOPRIL ERBUMINE0 [Concomitant]
  6. CONCOR 2 (BISOPROLOL FUMARATE) [Concomitant]
  7. ZYLORIC 300 (ALLOPURINOL) [Concomitant]
  8. TRAMAL LONG (TRAMADOL HYDROCHLORIDE) [Concomitant]
  9. NOVALDIN INJ [Concomitant]

REACTIONS (2)
  - DUODENAL ULCER HAEMORRHAGE [None]
  - UPPER GASTROINTESTINAL HAEMORRHAGE [None]
